FAERS Safety Report 5834540-5 (Version None)
Quarter: 2008Q3

REPORT INFORMATION
  Report Type: 
  Country: None (occurrence: None)
  Receive Date: 20080805
  Receipt Date: 20080724
  Transmission Date: 20090109
  Serious: Yes (Other)
  Sender: FDA-Public Use
  Company Number: US-PFIZER INC-2008062585

PATIENT
  Sex: Male

DRUGS (3)
  1. CHANTIX [Suspect]
     Indication: EX-TOBACCO USER
  2. CARDIOVASCULAR SYSTEM DRUGS [Concomitant]
  3. MUSCLE RELAXANTS [Concomitant]

REACTIONS (1)
  - BLOOD PRESSURE FLUCTUATION [None]
